FAERS Safety Report 10441662 (Version 1)
Quarter: 2014Q3

REPORT INFORMATION
  Report Type: Report from Study
  Country: DE (occurrence: DE)
  Receive Date: 20140908
  Receipt Date: 20140908
  Transmission Date: 20150326
  Serious: No
  Sender: FDA-Public Use
  Company Number: PHHY2014DE107204

PATIENT
  Sex: Male

DRUGS (3)
  1. AMN107 [Suspect]
     Active Substance: NILOTINIB
     Dosage: 300 MG, PER DAY
     Route: 048
     Dates: start: 20140513, end: 20140719
  2. PREDNISOLON [Concomitant]
     Active Substance: PREDNISOLONE
     Dosage: 50 MG, UNK
     Dates: start: 20130813
  3. AMN107 [Suspect]
     Active Substance: NILOTINIB
     Indication: CHRONIC MYELOID LEUKAEMIA
     Dosage: 600 MG, PER DAY
     Route: 048
     Dates: start: 20130723, end: 20140303

REACTIONS (1)
  - Rash [Recovering/Resolving]

NARRATIVE: CASE EVENT DATE: 20130813
